FAERS Safety Report 8451778-1 (Version None)
Quarter: 2012Q2

REPORT INFORMATION
  Report Type: 
  Country: None (occurrence: None)
  Receive Date: 20120620
  Receipt Date: 20120404
  Transmission Date: 20120825
  Serious: No
  Sender: FDA-Public Use
  Company Number: US-VERTEX PHARMACEUTICALS INC.-AE-2012-003868

PATIENT
  Sex: Male
  Weight: 85.806 kg

DRUGS (6)
  1. PEGINTERFERON ALFA-2A [Concomitant]
     Indication: HEPATITIS C
     Route: 058
     Dates: start: 20120314
  2. AMBIEN [Concomitant]
  3. ALBUTEROL [Concomitant]
     Indication: ASTHMA
  4. XANAX [Concomitant]
     Indication: ANXIETY
  5. INCIVEK [Suspect]
     Indication: HEPATITIS C
     Route: 048
     Dates: start: 20120314
  6. RIBAVIRIN [Concomitant]
     Indication: HEPATITIS C
     Route: 048
     Dates: start: 20120314

REACTIONS (6)
  - WHEEZING [None]
  - PYREXIA [None]
  - ADVERSE EVENT [None]
  - ASTHMA [None]
  - NAUSEA [None]
  - BRONCHITIS [None]
